FAERS Safety Report 7737233-2 (Version None)
Quarter: 2011Q3

REPORT INFORMATION
  Report Type: 
  Country: None (occurrence: None)
  Receive Date: 20110908
  Receipt Date: 20110830
  Transmission Date: 20111222
  Serious: Yes (Other)
  Sender: FDA-Public Use
  Company Number: US-UCBSA-038134

PATIENT
  Sex: Female
  Weight: 81.6 kg

DRUGS (1)
  1. CIMZIA [Suspect]
     Indication: CROHN'S DISEASE
     Route: 058
     Dates: start: 20110401, end: 20110801

REACTIONS (10)
  - GENERALISED OEDEMA [None]
  - GINGIVAL ULCERATION [None]
  - STOMATITIS [None]
  - EYE SWELLING [None]
  - FATIGUE [None]
  - OFF LABEL USE [None]
  - HYPERSOMNIA [None]
  - INSOMNIA [None]
  - DIARRHOEA [None]
  - ARTHRALGIA [None]
